FAERS Safety Report 7824719-5 (Version None)
Quarter: 2011Q4

REPORT INFORMATION
  Report Type: 
  Country: None (occurrence: None)
  Receive Date: 20111019
  Receipt Date: 20111013
  Transmission Date: 20120403
  Serious: Yes (Life-Threatening, Hospitalization)
  Sender: FDA-Public Use
  Company Number: PHEH2011US06780

PATIENT
  Sex: Female

DRUGS (3)
  1. DIOVAN [Suspect]
     Dosage: 80 MG, QD
  2. DIOVAN [Suspect]
     Dosage: 160 MG, QD
  3. DIOVAN [Suspect]
     Dosage: 80 MG, UNK

REACTIONS (6)
  - DYSPNOEA [None]
  - FEELING ABNORMAL [None]
  - BLOOD PRESSURE INCREASED [None]
  - CHEST DISCOMFORT [None]
  - DISCOMFORT [None]
  - MEMORY IMPAIRMENT [None]
